FAERS Safety Report 9370217 (Version 1)
Quarter: 2013Q2

REPORT INFORMATION
  Report Type: Spontaneous
  Country: US (occurrence: None)
  Receive Date: 20130624
  Receipt Date: 20130624
  Transmission Date: 20140414
  Serious: Yes (Hospitalization, Other)
  Sender: FDA-Public Use
  Company Number: ADR-2013-01038

PATIENT
  Age: 41 Year
  Sex: Female

DRUGS (4)
  1. BACLOFEN INTRATHECAL [Suspect]
  2. DILAUDID (HYDROMORPHONE) [Suspect]
  3. FENTANYL [Concomitant]
  4. ZANAFLEX [Concomitant]

REACTIONS (11)
  - Device dislocation [None]
  - Pain [None]
  - Drug ineffective [None]
  - Loss of consciousness [None]
  - Device failure [None]
  - Overdose [None]
  - Abasia [None]
  - Movement disorder [None]
  - Spinal cord neoplasm [None]
  - Paralysis [None]
  - Device leakage [None]
